FAERS Safety Report 14245093 (Version 2)
Quarter: 2018Q1

REPORT INFORMATION
  Report Type: Spontaneous
  Country: CN (occurrence: CN)
  Receive Date: 20171202
  Receipt Date: 20180125
  Transmission Date: 20180508
  Serious: Yes (Hospitalization, Other)
  Sender: FDA-Public Use
  Company Number: CN-SUN PHARMACEUTICAL INDUSTRIES LTD-2017R1-155798

PATIENT
  Age: 56 Year
  Sex: Female

DRUGS (1)
  1. IMATINIB [Suspect]
     Active Substance: IMATINIB
     Indication: CHRONIC MYELOID LEUKAEMIA
     Dosage: 400 MG, DAILY
     Route: 065
     Dates: start: 2012

REACTIONS (1)
  - Invasive ductal breast carcinoma [Unknown]

NARRATIVE: CASE EVENT DATE: 201610
